FAERS Safety Report 10174913 (Version 1)
Quarter: 2014Q2

REPORT INFORMATION
  Report Type: Spontaneous
  Country: US (occurrence: None)
  Receive Date: 20140416
  Receipt Date: 20140416
  Transmission Date: 20141212
  Serious: No
  Sender: FDA-Public Use
  Company Number: 163-POMAL-14021481

PATIENT
  Age: 59 Year
  Sex: Male

DRUGS (9)
  1. POMALYST [Suspect]
     Indication: PLASMA CELL MYELOMA
     Dosage: 4 MG, 21 IN 21 D, PO
     Route: 048
     Dates: start: 20140116
  2. ACYCLOVIR (ACICLOVIR) (ACICLOVIR) [Concomitant]
  3. LEVOFLOXACIN (LEVOFLOXACIN) [Concomitant]
  4. CLOBETASOL PROPIONATE (CLOBETASOL PROPIONATE) [Concomitant]
  5. CIPROFLOXACIN HCL (CIPROFLOXACIN HYDROCHLORIDE) [Concomitant]
  6. AVELOX (MOXIFLOXACIN HYDROCHLORIDE) [Concomitant]
  7. POTASSIUM CHLORIDE (POTASSIUM CHLORIDE) [Concomitant]
  8. DEXAMETHASONE (DEXAMETHASONE [Concomitant]
  9. ECOTRIN (ACETYLSALICYLIC ACID) [Concomitant]

REACTIONS (2)
  - Rash pruritic [None]
  - Drug dose omission [None]
